FAERS Safety Report 20849959 (Version 1)
Quarter: 2022Q2

REPORT INFORMATION
  Report Type: Report from Study
  Country: MX (occurrence: MX)
  Receive Date: 20220519
  Receipt Date: 20220519
  Transmission Date: 20220721
  Serious: Yes (Other)
  Sender: FDA-Public Use
  Company Number: MX-BIOGEN-2022BI01123501

PATIENT
  Sex: Female
  Weight: 94 kg

DRUGS (2)
  1. TECFIDERA [Suspect]
     Active Substance: DIMETHYL FUMARATE
     Indication: Multiple sclerosis
     Dosage: 1 ORAL CAPSULE OF 240 MG OF TECFIDERA (DIMETHYL FUMARATE) TWICE A DAY
     Route: 048
     Dates: start: 20170911, end: 2021
  2. TECFIDERA [Suspect]
     Active Substance: DIMETHYL FUMARATE
     Dosage: 1 ORAL CAPSULE OF 240 MG OF TECFIDERA (DIMETHYL FUMARATE) ONCE A DAY
     Route: 048
     Dates: start: 2021, end: 202110

REACTIONS (6)
  - Seizure [Unknown]
  - Tremor [Not Recovered/Not Resolved]
  - Diplopia [Not Recovered/Not Resolved]
  - Underdose [Recovered/Resolved]
  - Vision blurred [Not Recovered/Not Resolved]
  - Unintentional use for unapproved indication [Recovered/Resolved]

NARRATIVE: CASE EVENT DATE: 20200101
